FAERS Safety Report 8999563 (Version 3)
Quarter: 2013Q1

REPORT INFORMATION
  Report Type: Spontaneous
  Country: IT (occurrence: IT)
  Receive Date: 20130102
  Receipt Date: 20130128
  Transmission Date: 20140127
  Serious: Yes (Hospitalization, Other)
  Sender: FDA-Public Use
  Company Number: IT-PFIZER INC-2012324130

PATIENT
  Age: 77 Year
  Sex: Female

DRUGS (8)
  1. TRIATEC [Suspect]
     Indication: HYPERTENSION
     Dosage: 3 DF, DAILY
     Route: 048
     Dates: start: 20090101
  2. BISOPROLOL FUMARATE [Suspect]
     Indication: HYPERTENSION
     Dosage: 10 MG, DAILY
     Route: 048
     Dates: start: 20090101
  3. LASITONE [Suspect]
     Indication: HYPERTENSION
     Dosage: 1 DF, DAILY
     Route: 048
     Dates: start: 20090101
  4. AMLODIPINE BESILATE [Concomitant]
     Dosage: UNK
  5. SIMVASTATIN [Concomitant]
     Dosage: UNK
  6. AMARYL [Concomitant]
     Dosage: UNK
  7. CLOPIDOGREL BISULFATE [Concomitant]
     Dosage: UNK
  8. RANITIDINE HYDROCHLORIDE [Concomitant]
     Dosage: UNK

REACTIONS (6)
  - Arrhythmia [Recovering/Resolving]
  - Hyperkalaemia [Recovering/Resolving]
  - Nodal rhythm [Recovering/Resolving]
  - Heart rate decreased [Recovering/Resolving]
  - Blood creatinine increased [Recovering/Resolving]
  - Blood urea increased [Recovering/Resolving]
